FAERS Safety Report 16088936 (Version 1)
Quarter: 2019Q1

REPORT INFORMATION
  Report Type: Spontaneous
  Country: US (occurrence: US)
  Receive Date: 20190319
  Receipt Date: 20190319
  Transmission Date: 20190418
  Serious: No
  Sender: FDA-Public Use
  Company Number: US-MYLANLABS-2019M1018470

PATIENT

DRUGS (2)
  1. CLORAZEPATE DIPOTASSIUM TABLETS, USP [Suspect]
     Active Substance: CLORAZEPATE DIPOTASSIUM
     Indication: INSOMNIA
     Dosage: 15 MILLIGRAM
     Route: 048
  2. CLORAZEPATE DIPOTASSIUM TABLETS, USP [Suspect]
     Active Substance: CLORAZEPATE DIPOTASSIUM
     Indication: BACK PAIN

REACTIONS (2)
  - Sinusitis [Unknown]
  - Drug ineffective for unapproved indication [Unknown]
